FAERS Safety Report 15500819 (Version 1)
Quarter: 2018Q4

REPORT INFORMATION
  Report Type: Report from Study
  Country: US (occurrence: US)
  Receive Date: 20181015
  Receipt Date: 20181015
  Transmission Date: 20190205
  Serious: Yes (Other)
  Sender: FDA-Public Use
  Company Number: US-MYLANLABS-2018M1067714

PATIENT
  Sex: Female
  Weight: 56.69 kg

DRUGS (1)
  1. GLATIRAMER ACETATE INJECTION [Suspect]
     Active Substance: GLATIRAMER ACETATE
     Indication: MULTIPLE SCLEROSIS RELAPSE
     Dosage: 40MG SQ 3 TIMES/WEEK
     Route: 065
     Dates: start: 2018

REACTIONS (4)
  - Ocular discomfort [Unknown]
  - Injection site discomfort [Recovering/Resolving]
  - Headache [Unknown]
  - Migraine [Unknown]

NARRATIVE: CASE EVENT DATE: 2018
